FAERS Safety Report 7672096-5 (Version None)
Quarter: 2011Q3

REPORT INFORMATION
  Report Type: 
  Country: None (occurrence: None)
  Receive Date: 20110809
  Receipt Date: 20110802
  Transmission Date: 20111222
  Serious: Yes (Hospitalization, Other)
  Sender: FDA-Public Use
  Company Number: PHHY2011MX70574

PATIENT
  Age: 72 Year
  Sex: Female

DRUGS (2)
  1. PEGASIL [Concomitant]
     Dosage: 1 DF, QW
  2. ZOLEDRONOC ACID [Suspect]
     Indication: OSTEOPOROSIS
     Dosage: 5 MG/100 ML, PER YEAR
     Route: 042

REACTIONS (3)
  - FALL [None]
  - HEPATITIS C [None]
  - GALLBLADDER DISORDER [None]
